FAERS Safety Report 9061848 (Version 1)
Quarter: 2013Q1

REPORT INFORMATION
  Report Type: Spontaneous
  Country: TR (occurrence: TR)
  Receive Date: 20130128
  Receipt Date: 20130128
  Transmission Date: 20140127
  Serious: Yes (Other)
  Sender: FDA-Public Use
  Company Number: TR-AMGEN-TURSP2013004733

PATIENT
  Age: 73 Year
  Sex: Male

DRUGS (7)
  1. FILGRASTIM [Suspect]
     Indication: NEUTROPENIA
     Dosage: 5 MUG/KG, QD
  2. DOCETAXEL [Concomitant]
     Indication: LARYNGEAL CANCER
     Dosage: UNK
  3. DOCETAXEL [Concomitant]
     Indication: METASTASES TO LUNG
  4. CISPLATIN [Concomitant]
     Indication: LARYNGEAL CANCER
     Dosage: UNK
  5. CISPLATIN [Concomitant]
     Indication: METASTASES TO LUNG
  6. FLUOROURACIL [Concomitant]
     Indication: LARYNGEAL CANCER
     Dosage: UNK
  7. FLUOROURACIL [Concomitant]
     Indication: METASTASES TO LUNG

REACTIONS (1)
  - Acute myocardial infarction [Unknown]
